FAERS Safety Report 7397076-9 (Version None)
Quarter: 2011Q2

REPORT INFORMATION
  Report Type: 
  Country: None (occurrence: None)
  Receive Date: 20110406
  Receipt Date: 20110329
  Transmission Date: 20111010
  Serious: Yes (Hospitalization)
  Sender: FDA-Public Use
  Company Number: A0773277A

PATIENT
  Age: 71 Year
  Sex: Male
  Weight: 131.8 kg

DRUGS (5)
  1. ACTOS [Concomitant]
     Dates: start: 20050101, end: 20070501
  2. DIOVAN [Concomitant]
  3. METFORMIN [Concomitant]
     Dates: start: 20050101, end: 20070501
  4. AVANDIA [Suspect]
     Route: 048
     Dates: start: 20060414, end: 20070501
  5. DIABETA [Concomitant]
     Dates: start: 20040501

REACTIONS (3)
  - PULMONARY HYPERTENSION [None]
  - CARDIAC FAILURE CONGESTIVE [None]
  - VENTRICULAR TACHYCARDIA [None]
